FAERS Safety Report 8808951 (Version 2)
Quarter: 2012Q4

REPORT INFORMATION
  Report Type: 
  Country: US (occurrence: US)
  Receive Date: 20120926
  Receipt Date: 20121023
  Transmission Date: 20130627
  Serious: Yes (Death)
  Sender: FDA-Public Use
  Company Number: US-ASTELLAS-2012US008039

PATIENT
  Age: 74 Year
  Sex: Male

DRUGS (26)
  1. TARCEVA [Suspect]
     Indication: PRODUCT USED FOR UNKNOWN INDICATION
     Dosage: UNK
     Route: 048
  2. ASPIRIN [Concomitant]
     Indication: PRODUCT USED FOR UNKNOWN INDICATION
     Dosage: 81 mg, UID/QD
     Route: 065
  3. ALBUTEROL                          /00139502/ [Concomitant]
     Indication: PRODUCT USED FOR UNKNOWN INDICATION
     Dosage: UNK
     Route: 065
  4. ADVAIR [Concomitant]
     Indication: PRODUCT USED FOR UNKNOWN INDICATION
     Dosage: 250/50 daily
     Route: 065
  5. SPIRIVA HANDIHALER [Concomitant]
     Indication: PRODUCT USED FOR UNKNOWN INDICATION
     Dosage: 18 ug, 1 puff
     Route: 065
  6. TRICOR                             /00499301/ [Concomitant]
     Indication: PRODUCT USED FOR UNKNOWN INDICATION
     Dosage: 200 mg, Unknown/D
     Route: 065
  7. CVS STOOL SOFTENER [Concomitant]
     Indication: PRODUCT USED FOR UNKNOWN INDICATION
     Dosage: 100 mg, Unknown/D
     Route: 065
  8. CALAMINE PLUS [Concomitant]
     Indication: PRODUCT USED FOR UNKNOWN INDICATION
     Dosage: 1 DF, bid
     Route: 065
  9. SANTYL [Concomitant]
     Indication: PRODUCT USED FOR UNKNOWN INDICATION
     Dosage: UNK
     Route: 061
  10. LASIX                              /00032601/ [Concomitant]
     Indication: PRODUCT USED FOR UNKNOWN INDICATION
     Dosage: 20 mg, Unknown/D
     Route: 048
  11. TOPROL XL [Concomitant]
     Indication: PRODUCT USED FOR UNKNOWN INDICATION
     Dosage: 100 mg, UID/QD
     Route: 065
  12. NITRODUR [Concomitant]
     Indication: PRODUCT USED FOR UNKNOWN INDICATION
     Dosage: 0.2 mg, UID/QD
     Route: 065
  13. TERAZOSIN HCL [Concomitant]
     Indication: PRODUCT USED FOR UNKNOWN INDICATION
     Dosage: 2 mg, UID/QD
     Route: 065
  14. DULCOLAX                           /00064401/ [Concomitant]
     Indication: PRODUCT USED FOR UNKNOWN INDICATION
     Dosage: UNK
     Route: 054
  15. ACETAMINOPHEN [Concomitant]
     Indication: PRODUCT USED FOR UNKNOWN INDICATION
     Dosage: 325 mg, 1-2 tabs Q6h prn
     Route: 065
  16. COUMADIN                           /00014802/ [Concomitant]
     Indication: PRODUCT USED FOR UNKNOWN INDICATION
     Dosage: 4 mg, UID/QD
     Route: 048
  17. PANTOPRAZOLE SODIUM [Concomitant]
     Indication: PRODUCT USED FOR UNKNOWN INDICATION
     Dosage: 40 mg, UID/QD
     Route: 048
  18. ZOFRAN                             /00955301/ [Concomitant]
     Indication: NAUSEA
     Dosage: Q6h prn
     Route: 048
  19. CLOPIDOGREL BISULFATE [Concomitant]
     Indication: PRODUCT USED FOR UNKNOWN INDICATION
     Dosage: 75 mg, UID/QD
     Route: 048
  20. DEXAMETHASONE [Concomitant]
     Indication: PRODUCT USED FOR UNKNOWN INDICATION
     Dosage: 4 mg, bid
     Route: 065
  21. DEXAMETHASONE [Concomitant]
     Dosage: 4 mg, UID/QD
     Route: 065
  22. GLUCOPHAGE [Concomitant]
     Indication: PRODUCT USED FOR UNKNOWN INDICATION
     Dosage: 1000 mg, 1/2 tab bid for 1 week
     Route: 048
  23. GLUCOPHAGE [Concomitant]
     Dosage: 1000 mg, BID
     Route: 048
  24. GLIPIZIDE [Concomitant]
     Indication: PRODUCT USED FOR UNKNOWN INDICATION
     Dosage: 5 mg, UID/QD
     Route: 048
  25. ULTRAM [Concomitant]
     Indication: PAIN
     Dosage: 50 mg, 1-2 tab Q6h prn
     Route: 065
  26. MINOCIN [Concomitant]
     Indication: PRODUCT USED FOR UNKNOWN INDICATION
     Dosage: 100 mg, UID/QD
     Route: 065

REACTIONS (4)
  - Chronic obstructive pulmonary disease [Fatal]
  - Respiratory failure [Fatal]
  - Malignant neoplasm progression [Fatal]
  - Metastases to central nervous system [Fatal]
